FAERS Safety Report 21424341 (Version 2)
Quarter: 2022Q4

REPORT INFORMATION
  Report Type: Spontaneous
  Country: IT (occurrence: IT)
  Receive Date: 20221007
  Receipt Date: 20221014
  Transmission Date: 20230112
  Serious: Yes (Life-Threatening)
  Sender: FDA-Public Use
  Company Number: IT-JNJFOC-20220942614

PATIENT
  Age: 73 Year
  Sex: Male

DRUGS (12)
  1. DEXAMETHASONE [Suspect]
     Active Substance: DEXAMETHASONE
     Indication: Plasma cell myeloma
     Dosage: INITIAL CYCLE OF CHEMOTHERAPY
     Route: 065
     Dates: start: 2017
  2. DEXAMETHASONE [Suspect]
     Active Substance: DEXAMETHASONE
     Indication: Plasma cell myeloma
     Dosage: THIRD-LINE THERAPY (FOR FOUR ADDITIONAL CYCLES)
     Route: 065
     Dates: start: 201709, end: 201803
  3. DEXAMETHASONE [Suspect]
     Active Substance: DEXAMETHASONE
     Dosage: PATIENT RECEIVED TWO NEW CYCLES OF CHEMOTHERAPY WITH RD
     Route: 065
     Dates: start: 201811
  4. DEXAMETHASONE [Suspect]
     Active Substance: DEXAMETHASONE
     Dosage: ALTERNATIVE THERAPEUTIC REGIMEN (VRD) FOR ONE CYCLE
     Route: 065
  5. LENALIDOMIDE [Suspect]
     Active Substance: LENALIDOMIDE
     Indication: Plasma cell myeloma
     Dosage: THIRD-LINE THERAPY (FOR FOUR ADDITIONAL CYCLES)
     Route: 065
     Dates: start: 201709, end: 201803
  6. LENALIDOMIDE [Suspect]
     Active Substance: LENALIDOMIDE
     Dosage: TWO NEW CYCLES
     Route: 065
     Dates: start: 201811
  7. LENALIDOMIDE [Suspect]
     Active Substance: LENALIDOMIDE
     Dosage: ALTERNATIVE THERAPEUTIC REGIMEN (VRD) FOR ONE CYCLE
     Route: 065
  8. BORTEZOMIB [Suspect]
     Active Substance: BORTEZOMIB
     Indication: Plasma cell myeloma
     Dosage: INITIAL CYCLE OF CHEMOTHERAPY
     Route: 065
     Dates: start: 2017
  9. BORTEZOMIB [Suspect]
     Active Substance: BORTEZOMIB
     Dosage: ALTERNATIVE THERAPEUTIC REGIMEN (VRD) FOR ONE CYCLE
     Route: 065
  10. BORTEZOMIB [Suspect]
     Active Substance: BORTEZOMIB
     Dosage: RESCUE THERAPY
     Route: 065
     Dates: start: 201903
  11. BENDAMUSTINE HYDROCHLORIDE [Suspect]
     Active Substance: BENDAMUSTINE HYDROCHLORIDE
     Indication: Plasma cell myeloma
     Dosage: RESCUE THERAPY
     Route: 065
     Dates: start: 201903
  12. ADRIAMYCIN [Concomitant]
     Active Substance: DOXORUBICIN HYDROCHLORIDE
     Indication: Plasma cell myeloma
     Dosage: TO BE ADMINISTERED OVER FOUR CYCLES
     Route: 065
     Dates: start: 2017

REACTIONS (1)
  - Therapy non-responder [Unknown]
